FAERS Safety Report 6797979-X (Version None)
Quarter: 2010Q2

REPORT INFORMATION
  Report Type: 
  Country: None (occurrence: None)
  Receive Date: 20100624
  Receipt Date: 20100609
  Transmission Date: 20101027
  Serious: Yes (Hospitalization)
  Sender: FDA-Public Use
  Company Number: UTC-001163

PATIENT
  Age: 35 Year
  Sex: Female
  Weight: 91 kg

DRUGS (9)
  1. REMODULIN [Suspect]
     Dosage: 100.8 UG/KG (0.07 UG/KG, 1 IN 1 MIN), SUBCUTANEOUS
     Route: 058
     Dates: start: 20091002
  2. PAXIL [Concomitant]
  3. LASIX [Concomitant]
  4. REVATIO (SILDENAFIL SODIUM) [Concomitant]
  5. POTASSIUM CHLORIDE [Concomitant]
  6. LANOXIN [Concomitant]
  7. MORPHINE [Concomitant]
  8. ALDACTONE [Concomitant]
  9. OXYCODONE HCL [Concomitant]

REACTIONS (3)
  - DEHYDRATION [None]
  - NAUSEA [None]
  - VOMITING [None]
